FAERS Safety Report 7036871-2 (Version None)
Quarter: 2010Q4

REPORT INFORMATION
  Report Type: 
  Country: None (occurrence: None)
  Receive Date: 20101011
  Receipt Date: 20101006
  Transmission Date: 20110411
  Serious: Yes (Death, Hospitalization)
  Sender: FDA-Public Use
  Company Number: PHHY2010CA44991

PATIENT
  Sex: Male

DRUGS (2)
  1. CLOZARIL [Suspect]
     Indication: SCHIZOPHRENIA
     Dosage: 225 MG
     Route: 048
     Dates: start: 19960429
  2. CLOZARIL [Suspect]
     Dosage: 250 MG

REACTIONS (1)
  - RENAL FAILURE [None]
